FAERS Safety Report 9520964 (Version 3)
Quarter: 2013Q4

REPORT INFORMATION
  Report Type: Spontaneous
  Country: US (occurrence: US)
  Receive Date: 20130913
  Receipt Date: 20131002
  Transmission Date: 20140711
  Serious: Yes (Other)
  Sender: FDA-Public Use
  Company Number: US-PFIZER INC-2013260042

PATIENT
  Age: 68 Year
  Sex: Female
  Weight: 56.69 kg

DRUGS (6)
  1. LYRICA [Suspect]
     Indication: MUSCLE SPASMS
     Dosage: 50 MG, 2X/DAY (2 A DAY)
     Dates: start: 20130907
  2. LYRICA [Suspect]
     Indication: NEUROPATHY PERIPHERAL
     Dosage: UNK
     Dates: end: 20130928
  3. GABAPENTIN [Suspect]
     Indication: NEUROPATHY PERIPHERAL
     Dosage: 220 MG, DAILY
     Dates: start: 20130408, end: 20130413
  4. GABAPENTIN [Suspect]
     Dosage: UNK
  5. LORAZEPAM [Suspect]
     Dosage: UNK
     Dates: start: 2013
  6. NORCO [Concomitant]
     Indication: MUSCLE SPASMS
     Dosage: UNK

REACTIONS (11)
  - Off label use [Unknown]
  - Incorrect dose administered [Unknown]
  - Bedridden [Unknown]
  - Anuria [Unknown]
  - Fluid retention [Recovered/Resolved]
  - Spinal disorder [Unknown]
  - Asthenia [Unknown]
  - Pain [Recovered/Resolved]
  - Abdominal distension [Recovered/Resolved]
  - Malaise [Recovered/Resolved]
  - Drug ineffective for unapproved indication [Unknown]
